FAERS Safety Report 7810362-0 (Version None)
Quarter: 2011Q4

REPORT INFORMATION
  Report Type: 
  Country: None (occurrence: None)
  Receive Date: 20111012
  Receipt Date: 20110929
  Transmission Date: 20120403
  Serious: No
  Sender: FDA-Public Use
  Company Number: US-B.I. PHARMACEUTICALS,INC./RIDGEFIELD-2011-BP-23395BP

PATIENT

DRUGS (1)
  1. SPIRIVA [Suspect]

REACTIONS (2)
  - URINARY RETENTION [None]
  - CHOLINERGIC SYNDROME [None]
